FAERS Safety Report 9321395 (Version 1)
Quarter: 2013Q2

REPORT INFORMATION
  Report Type: Spontaneous
  Country: DE (occurrence: None)
  Receive Date: 20130528
  Receipt Date: 20130528
  Transmission Date: 20140414
  Serious: Yes (Other)
  Sender: FDA-Public Use
  Company Number: AUR-APL-2013-04175

PATIENT
  Age: 20 Year
  Sex: Female
  Weight: 65 kg

DRUGS (5)
  1. LAMOTRIGINE (LAMOTRIGINE) [Suspect]
     Route: 048
     Dates: start: 20120115, end: 20130305
  2. TOPIRAMATE (TOPIRAMATE) [Suspect]
     Route: 048
     Dates: start: 20121015, end: 20130305
  3. FOLSAURE [Concomitant]
  4. CEFUROXIME [Concomitant]
  5. BUSCOPAN [Concomitant]

REACTIONS (6)
  - Maternal exposure during pregnancy [None]
  - Pregnancy [None]
  - Preterm premature rupture of membranes [None]
  - Abortion late [None]
  - Bacterial infection [None]
  - Pain [None]
